FAERS Safety Report 7450943-X (Version None)
Quarter: 2011Q2

REPORT INFORMATION
  Report Type: 
  Country: None (occurrence: None)
  Receive Date: 20110502
  Receipt Date: 20110425
  Transmission Date: 20111010
  Serious: Yes (Other)
  Sender: FDA-Public Use
  Company Number: US-ROCHE-687564

PATIENT
  Sex: Female
  Weight: 65.8 kg

DRUGS (2)
  1. BIRTH CONTROL PILL [Concomitant]
  2. ACCUTANE [Suspect]
     Dosage: 40 MG MORNING AND 20 MG AT NIGHT
     Route: 048
     Dates: start: 20011101, end: 20020501

REACTIONS (8)
  - ANAL FISSURE [None]
  - INFLAMMATORY BOWEL DISEASE [None]
  - COLITIS ULCERATIVE [None]
  - BLOOD TRIGLYCERIDES INCREASED [None]
  - DEPRESSION [None]
  - IRRITABLE BOWEL SYNDROME [None]
  - SUICIDAL IDEATION [None]
  - BLOOD CHOLESTEROL INCREASED [None]
